FAERS Safety Report 5497656-1 (Version None)
Quarter: 2007Q4

REPORT INFORMATION
  Report Type: 
  Country: None (occurrence: None)
  Receive Date: 20071025
  Receipt Date: 20070213
  Transmission Date: 20080405
  Serious: No
  Sender: FDA-Public Use
  Company Number: A0637672A

PATIENT
  Sex: Female

DRUGS (4)
  1. ADVAIR DISKUS 100/50 [Suspect]
     Indication: UPPER RESPIRATORY TRACT INFECTION
     Route: 065
  2. ALLEGRA D 24 HOUR [Concomitant]
     Dosage: 1TAB PER DAY
  3. ZANTAC [Concomitant]
     Dosage: 150MG TWICE PER DAY
  4. VITAMIN E [Concomitant]
     Dosage: 400MCG PER DAY

REACTIONS (2)
  - NAIL DISCOLOURATION [None]
  - ONYCHOMYCOSIS [None]
